FAERS Safety Report 5607684-0 (Version None)
Quarter: 2008Q1

REPORT INFORMATION
  Report Type: 
  Country: None (occurrence: None)
  Receive Date: 20080125
  Receipt Date: 20080114
  Transmission Date: 20080703
  Serious: Yes (Congenital Anomaly)
  Sender: FDA-Public Use
  Company Number: PHFR2008GB00546

PATIENT
  Sex: Female
  Weight: 2.6 kg

DRUGS (3)
  1. AMOXICILLIN [Suspect]
     Dosage: TRANSPLACENTAL
     Route: 064
  2. MALARONE [Suspect]
     Indication: MALARIA PROPHYLAXIS
     Dosage: TRANSPLACENTAL
     Route: 064
  3. ACETAMINOPHEN [Suspect]
     Indication: PAIN
     Dosage: TRANSPLACENTAL
     Route: 064

REACTIONS (2)
  - DRUG EXPOSURE DURING PREGNANCY [None]
  - VENTRICULAR SEPTAL DEFECT [None]
